FAERS Safety Report 19815187 (Version 2)
Quarter: 2021Q3

REPORT INFORMATION
  Report Type: Spontaneous
  Country: US (occurrence: US)
  Receive Date: 20210910
  Receipt Date: 20210915
  Transmission Date: 20211014
  Serious: No
  Sender: FDA-Public Use
  Company Number: US-PFIZER INC-202101058365

PATIENT
  Age: 70 Year
  Sex: Male

DRUGS (1)
  1. GENOTROPIN [Suspect]
     Active Substance: SOMATROPIN
     Dosage: 0.4 MG, DAILY
     Dates: start: 20210814

REACTIONS (8)
  - Asthenia [Unknown]
  - Abdominal discomfort [Unknown]
  - Headache [Unknown]
  - Device leakage [Unknown]
  - Fatigue [Unknown]
  - Device use issue [Unknown]
  - Mobility decreased [Unknown]
  - Incorrect dose administered [Unknown]
